FAERS Safety Report 5048324-1 (Version None)
Quarter: 2006Q3

REPORT INFORMATION
  Report Type: 
  Country: None (occurrence: None)
  Receive Date: 20060711
  Receipt Date: 20060628
  Transmission Date: 20061208
  Serious: Yes (Other)
  Sender: FDA-Public Use
  Company Number: US-BOEHRINGER INGELHEIM PHARMACEUTICALS, INC.-2006-DE-03323GD

PATIENT
  Age: 37 Year
  Sex: Male

DRUGS (7)
  1. CLONIDINE [Suspect]
     Indication: HYPERTENSION
  2. FUROSEMIDE [Suspect]
     Indication: HYPERTENSION
  3. LABETALOL HCL [Suspect]
     Indication: HYPERTENSION
  4. IRBESARTAN [Suspect]
     Indication: HYPERTENSION
  5. QUINAPRIL [Suspect]
     Indication: HYPERTENSION
  6. MINOXIDIL [Suspect]
     Indication: HYPERTENSION
  7. POTASSIUM SUPPLEMENTS [Suspect]
     Indication: HYPERTENSION

REACTIONS (6)
  - ADRENAL NEOPLASM [None]
  - CHEST PAIN [None]
  - DRUG INEFFECTIVE [None]
  - DYSPNOEA [None]
  - HYPERTENSIVE CRISIS [None]
  - HYPERTENSIVE ENCEPHALOPATHY [None]
